FAERS Safety Report 6069781-8 (Version None)
Quarter: 2009Q1

REPORT INFORMATION
  Report Type: 
  Country: None (occurrence: None)
  Receive Date: 20090209
  Receipt Date: 20090203
  Transmission Date: 20090719
  Serious: Yes (Death)
  Sender: FDA-Public Use
  Company Number: US-CELGENEUS-163-21880-08101541

PATIENT
  Sex: Male

DRUGS (8)
  1. REVLIMID [Suspect]
     Indication: MULTIPLE MYELOMA
     Route: 048
     Dates: start: 20071015, end: 20080916
  2. ASPIRIN [Concomitant]
     Indication: DRUG USE FOR UNKNOWN INDICATION
     Route: 065
  3. LOTREL [Concomitant]
     Indication: HYPERTENSION
     Route: 065
  4. ZOLPIDEM [Concomitant]
     Indication: SLEEP DISORDER
     Route: 065
  5. PRILOSEC [Concomitant]
     Route: 065
  6. DECADRON [Concomitant]
     Indication: MULTIPLE MYELOMA
     Route: 065
  7. ENDOCET [Concomitant]
     Indication: PAIN
     Dosage: 5/325MG
     Route: 065
  8. VELCADE [Concomitant]
     Indication: MULTIPLE MYELOMA
     Route: 051

REACTIONS (1)
  - HAEMORRHAGIC STROKE [None]
